FAERS Safety Report 14281505 (Version 1)
Quarter: 2017Q4

REPORT INFORMATION
  Report Type: Spontaneous
  Country: US (occurrence: US)
  Receive Date: 20171213
  Receipt Date: 20171213
  Transmission Date: 20180321
  Serious: Yes (Other)
  Sender: FDA-Public Use
  Company Number: None

PATIENT
  Age: 55 Year
  Sex: Female
  Weight: 90 kg

DRUGS (4)
  1. ZYRTEK [Concomitant]
     Active Substance: CETIRIZINE HYDROCHLORIDE
  2. NASOCORT [Concomitant]
     Active Substance: BUDESONIDE
  3. FLOVENT [Concomitant]
     Active Substance: FLUTICASONE PROPIONATE
  4. LEVALBUTEROL. [Suspect]
     Active Substance: LEVALBUTEROL
     Indication: ASTHMA
     Dosage: 2 PUFF(S); AS NEEDED RESPIRATORY (INHALATION)?
     Route: 055
     Dates: start: 20171213, end: 20171213

REACTIONS (4)
  - Product tampering [None]
  - Product taste abnormal [None]
  - Product odour abnormal [None]
  - Asthma [None]

NARRATIVE: CASE EVENT DATE: 20171213
